FAERS Safety Report 5644977-5 (Version None)
Quarter: 2008Q1

REPORT INFORMATION
  Report Type: 
  Country: None (occurrence: None)
  Receive Date: 20080229
  Receipt Date: 20080220
  Transmission Date: 20080703
  Serious: Yes (Hospitalization)
  Sender: FDA-Public Use
  Company Number: FI-ABBOTT-08P-055-0439149-00

PATIENT
  Sex: Male

DRUGS (3)
  1. DEPAKINE DEPOT [Suspect]
     Indication: EPILEPSY
     Route: 048
     Dates: start: 20041209, end: 20071107
  2. ASPIRIN [Concomitant]
     Indication: POOR PERIPHERAL CIRCULATION
     Route: 048
  3. LEVETIRACETAM [Concomitant]
     Indication: EPILEPSY
     Route: 048
     Dates: start: 20041201

REACTIONS (5)
  - BLOOD AMYLASE INCREASED [None]
  - C-REACTIVE PROTEIN INCREASED [None]
  - CHEST PAIN [None]
  - LEUKOCYTOSIS [None]
  - PANCREATITIS ACUTE [None]
